FAERS Safety Report 10034819 (Version 1)
Quarter: 2014Q1

REPORT INFORMATION
  Report Type: Report from Study
  Country: CN (occurrence: CN)
  Receive Date: 20140325
  Receipt Date: 20140325
  Transmission Date: 20141002
  Serious: Yes (Other)
  Sender: FDA-Public Use
  Company Number: CN-PFIZER INC-2014078581

PATIENT
  Age: 76 Year
  Sex: Female

DRUGS (7)
  1. ATORVASTATIN CALCIUM [Suspect]
     Dosage: UNK
  2. WARFARIN [Interacting]
     Dosage: 3 MG, DAILY
  3. WARFARIN [Interacting]
     Dosage: 2.25 MG, DAILY
  4. HEPARIN [Interacting]
     Indication: ANTICOAGULANT THERAPY
     Dosage: UNK
  5. AMIODARONE [Interacting]
     Dosage: UNK
  6. ACARBOSE [Interacting]
     Dosage: UNK
  7. OMEPRAZOLE [Interacting]
     Dosage: UNK

REACTIONS (2)
  - Drug interaction [Unknown]
  - Incision site haemorrhage [Recovered/Resolved]
